APPROVED DRUG PRODUCT: HALOPERIDOL
Active Ingredient: HALOPERIDOL
Strength: 5MG
Dosage Form/Route: TABLET;ORAL
Application: A200854 | Product #004
Applicant: ACTAVIS GROUP PTC EHF
Approved: Jul 1, 2022 | RLD: No | RS: No | Type: DISCN